FAERS Safety Report 4798215-6 (Version None)
Quarter: 2005Q4

REPORT INFORMATION
  Report Type: 
  Country: None (occurrence: None)
  Receive Date: 20051014
  Receipt Date: 20050323
  Transmission Date: 20060501
  Serious: No
  Sender: FDA-Public Use
  Company Number: US-BRISTOL-MYERS SQUIBB COMPANY-12908133

PATIENT

DRUGS (1)
  1. MEGACE [Suspect]

REACTIONS (1)
  - GYNAECOMASTIA [None]
